FAERS Safety Report 14264347 (Version 1)
Quarter: 2017Q4

REPORT INFORMATION
  Report Type: Spontaneous
  Country: DE (occurrence: DE)
  Receive Date: 20171208
  Receipt Date: 20171208
  Transmission Date: 20180321
  Serious: Yes (Hospitalization, Other)
  Sender: FDA-Public Use
  Company Number: DE-ASTRAZENECA-2017SF25086

PATIENT
  Age: 50 Year
  Sex: Female
  Weight: 95 kg

DRUGS (21)
  1. PREDNISOLON [Concomitant]
     Active Substance: PREDNISOLONE
     Dates: start: 20150313, end: 20150315
  2. GLYCOPYRRONIUM [Concomitant]
     Active Substance: GLYCOPYRRONIUM
     Dosage: 43/85 MCG IN MORNING
  3. PREDNISOLON [Concomitant]
     Active Substance: PREDNISOLONE
  4. CHLORPROTHIXEN [Concomitant]
     Active Substance: CHLORPROTHIXENE HYDROCHLORIDE
  5. FENOFIBRATE. [Concomitant]
     Active Substance: FENOFIBRATE
     Dosage: INCREASED FROM 18 TO 49 PPB
  6. RAMIPRIL. [Concomitant]
     Active Substance: RAMIPRIL
  7. LINEZOLID. [Concomitant]
     Active Substance: LINEZOLID
     Dates: end: 20150313
  8. PANTOPRAZOLE [Concomitant]
     Active Substance: PANTOPRAZOLE
  9. ROFLUMILAST. [Suspect]
     Active Substance: ROFLUMILAST
     Route: 048
  10. CALCIMAGON D3 [Concomitant]
     Active Substance: CALCIUM\CHOLECALCIFEROL
     Dosage: 800/1.25 IN MORNING
  11. MONTELUKAST [Concomitant]
     Active Substance: MONTELUKAST SODIUM
  12. THEOPHYLLIN RETARD [Concomitant]
  13. ROFLUMILAST. [Suspect]
     Active Substance: ROFLUMILAST
     Route: 048
  14. FERROSANOL DUODENAL [Concomitant]
     Active Substance: FERROGLYCINE SULFATE
  15. PREDNISOLON [Concomitant]
     Active Substance: PREDNISOLONE
     Dates: start: 20150310, end: 20150312
  16. PROCORALAN [Concomitant]
     Active Substance: IVABRADINE
  17. SYMBICORT [Suspect]
     Active Substance: BUDESONIDE\FORMOTEROL FUMARATE DIHYDRATE
     Dosage: 320/9 MCG 2 PUFF TWICE DAILY
     Route: 055
  18. SPIRIVA [Concomitant]
     Active Substance: TIOTROPIUM BROMIDE MONOHYDRATE
     Dosage: 18 MCG
  19. BISOPROLOL [Concomitant]
     Active Substance: BISOPROLOL
  20. CITALOPRAM [Concomitant]
     Active Substance: CITALOPRAM HYDROBROMIDE
  21. COTRIMOXAZOL [Concomitant]
     Active Substance: SULFAMETHOXAZOLE\TRIMETHOPRIM

REACTIONS (7)
  - Asthma [Unknown]
  - Eosinophilic bronchitis [Unknown]
  - Dyspnoea exertional [Unknown]
  - Condition aggravated [Unknown]
  - Lung hyperinflation [Unknown]
  - Respiratory failure [Unknown]
  - Cardiac failure [Unknown]

NARRATIVE: CASE EVENT DATE: 201601
